FAERS Safety Report 14576232 (Version 1)
Quarter: 2018Q1

REPORT INFORMATION
  Report Type: Report from Study
  Country: IL (occurrence: IL)
  Receive Date: 20180227
  Receipt Date: 20180227
  Transmission Date: 20180509
  Serious: Yes (Other)
  Sender: FDA-Public Use
  Company Number: IL-AMGEN-ISRSL2017150398

PATIENT
  Age: 72 Year
  Sex: Female

DRUGS (1)
  1. PROLIA [Suspect]
     Active Substance: DENOSUMAB
     Indication: PRODUCT USED FOR UNKNOWN INDICATION
     Dosage: UNK
     Route: 065
     Dates: start: 20170905

REACTIONS (6)
  - Wound abscess [Unknown]
  - Tooth extraction [Unknown]
  - Musculoskeletal pain [Not Recovered/Not Resolved]
  - Wound complication [Unknown]
  - Procedural pain [Not Recovered/Not Resolved]
  - Tooth disorder [Unknown]

NARRATIVE: CASE EVENT DATE: 201709
